FAERS Safety Report 5476597-X (Version None)
Quarter: 2007Q4

REPORT INFORMATION
  Report Type: 
  Country: None (occurrence: None)
  Receive Date: 20071004
  Receipt Date: 20071001
  Transmission Date: 20080405
  Serious: Yes (Death)
  Sender: FDA-Public Use
  Company Number: PHEH2007US13112

PATIENT
  Age: 63 Year
  Sex: Female
  Weight: 65.306 kg

DRUGS (11)
  1. LANOXIN [Concomitant]
  2. CLONIDINE [Concomitant]
  3. VERELAN [Concomitant]
  4. COUMADIN [Concomitant]
  5. LASIX [Concomitant]
  6. FOLIC ACID [Concomitant]
  7. ALLOPURINOL [Concomitant]
  8. ASPIRIN [Concomitant]
  9. SYNTHROID [Concomitant]
  10. LYRICA [Concomitant]
  11. TEKTURNA [Suspect]
     Indication: HYPERTENSION
     Dosage: 150 MG, QD
     Route: 048
     Dates: start: 20070510, end: 20070522

REACTIONS (1)
  - VASCULITIS NECROTISING [None]
